FAERS Safety Report 24408927 (Version 3)
Quarter: 2024Q4

REPORT INFORMATION
  Report Type: Report from Study
  Country: US (occurrence: US)
  Receive Date: 20241007
  Receipt Date: 20241222
  Transmission Date: 20250115
  Serious: Yes (Other)
  Sender: ABBVIE
  Company Number: US-ABBVIE-5948950

PATIENT
  Age: 72 Year
  Sex: Male
  Weight: 81.646 kg

DRUGS (12)
  1. HUMIRA [Suspect]
     Active Substance: ADALIMUMAB
     Indication: Osteoarthritis
     Dosage: FIRST ADMIN DATE - 2021
     Route: 058
     Dates: start: 20210728
  2. HUMIRA [Suspect]
     Active Substance: ADALIMUMAB
     Indication: Psoriatic arthropathy
     Route: 058
     Dates: start: 20210928, end: 20240906
  3. HUMIRA [Suspect]
     Active Substance: ADALIMUMAB
     Indication: Spinal stenosis
     Route: 058
     Dates: start: 202410
  4. HUMIRA [Suspect]
     Active Substance: ADALIMUMAB
     Indication: Ankylosing spondylitis
  5. HUMIRA [Suspect]
     Active Substance: ADALIMUMAB
     Indication: Spondylitis
  6. CORTISONE [Concomitant]
     Active Substance: CORTISONE
     Indication: Product used for unknown indication
  7. ALBUTEROL [Concomitant]
     Active Substance: ALBUTEROL
     Indication: Asthma
  8. HYDROXYZINE [Concomitant]
     Active Substance: HYDROXYZINE HYDROCHLORIDE
     Indication: Poor quality sleep
  9. ATORVASTATIN [Concomitant]
     Active Substance: ATORVASTATIN
     Indication: Blood cholesterol abnormal
  10. LEXAPRO [Concomitant]
     Active Substance: ESCITALOPRAM OXALATE
     Indication: Anxiety
     Dosage: 032
  11. MIRTAZAPINE [Concomitant]
     Active Substance: MIRTAZAPINE
     Indication: Poor quality sleep
  12. FLOVENT [Concomitant]
     Active Substance: FLUTICASONE PROPIONATE
     Indication: Asthma
     Dosage: 032, 44 MCG

REACTIONS (9)
  - Pollakiuria [Recovering/Resolving]
  - Nephrolithiasis [Recovering/Resolving]
  - Pyrexia [Recovered/Resolved]
  - Testicular pain [Recovering/Resolving]
  - Prostate cancer [Recovering/Resolving]
  - Urinary incontinence [Recovering/Resolving]
  - Testicular swelling [Recovering/Resolving]
  - Orchitis noninfective [Recovering/Resolving]
  - Hip arthroplasty [Recovered/Resolved]

NARRATIVE: CASE EVENT DATE: 20220501
